FAERS Safety Report 5205298-8 (Version None)
Quarter: 2007Q1

REPORT INFORMATION
  Report Type: 
  Country: None (occurrence: None)
  Receive Date: 20070110
  Receipt Date: 20070102
  Transmission Date: 20070707
  Serious: Yes (Hospitalization, Disabling, Other)
  Sender: FDA-Public Use
  Company Number: GB-ABBOTT-06P-167-0347717-00

PATIENT
  Sex: Female
  Weight: 38 kg

DRUGS (5)
  1. HUMIRA [Suspect]
     Indication: RHEUMATOID ARTHRITIS
     Route: 058
     Dates: start: 20040901, end: 20060901
  2. METHOTREXATE [Concomitant]
     Indication: DRUG USE FOR UNKNOWN INDICATION
  3. ACETAMINOPHEN [Concomitant]
     Indication: DRUG USE FOR UNKNOWN INDICATION
  4. FOLIC ACID [Concomitant]
     Indication: DRUG USE FOR UNKNOWN INDICATION
  5. GABAPENTIN [Concomitant]
     Indication: DRUG USE FOR UNKNOWN INDICATION

REACTIONS (5)
  - DEMYELINATION [None]
  - GENERAL SYMPTOM [None]
  - MUSCULAR WEAKNESS [None]
  - NECK PAIN [None]
  - SENSORY DISTURBANCE [None]
